FAERS Safety Report 12922012 (Version 1)
Quarter: 2016Q4

REPORT INFORMATION
  Report Type: Report from Study
  Country: US (occurrence: US)
  Receive Date: 20161108
  Receipt Date: 20161108
  Transmission Date: 20170207
  Serious: Yes (Other)
  Sender: FDA-Public Use
  Company Number: US-TEVA-710934USA

PATIENT
  Sex: Female

DRUGS (1)
  1. COPAXONE [Suspect]
     Active Substance: GLATIRAMER ACETATE
     Dosage: UNKNOWN FORM STRENGTH
     Route: 065

REACTIONS (6)
  - Chest discomfort [Unknown]
  - Decreased appetite [Unknown]
  - Dyspnoea [Unknown]
  - Loss of consciousness [Unknown]
  - Injection site pain [Unknown]
  - Injection site erythema [Unknown]
